FAERS Safety Report 7396641-2 (Version None)
Quarter: 2011Q2

REPORT INFORMATION
  Report Type: 
  Country: None (occurrence: None)
  Receive Date: 20110406
  Receipt Date: 20110331
  Transmission Date: 20111010
  Serious: Yes (Death, Hospitalization, Other)
  Sender: FDA-Public Use
  Company Number: PHHY2011CA15727

PATIENT
  Sex: Female

DRUGS (1)
  1. ZOMETA [Suspect]
     Indication: BREAST CANCER
     Dosage: 4 MG, EVERY 4 WEEKS
     Route: 042
     Dates: start: 20110222

REACTIONS (5)
  - BLOOD PRESSURE INCREASED [None]
  - PNEUMONIA [None]
  - HEART RATE INCREASED [None]
  - DRUG INEFFECTIVE [None]
  - NEOPLASM MALIGNANT [None]
